FAERS Safety Report 10040770 (Version 3)
Quarter: 2015Q2

REPORT INFORMATION
  Report Type: Spontaneous
  Country: US (occurrence: US)
  Receive Date: 20140327
  Receipt Date: 20150622
  Transmission Date: 20150821
  Serious: Yes (Other)
  Sender: FDA-Public Use
  Company Number: US-JNJFOC-20140309311

PATIENT
  Sex: Female
  Weight: 61.69 kg

DRUGS (2)
  1. LEVAQUIN [Suspect]
     Active Substance: LEVOFLOXACIN
     Indication: EAR PAIN
     Route: 048
     Dates: start: 200808, end: 2008
  2. LEVAQUIN [Suspect]
     Active Substance: LEVOFLOXACIN
     Indication: SINUSITIS
     Route: 042
     Dates: start: 2008, end: 200811

REACTIONS (30)
  - Impaired driving ability [Not Recovered/Not Resolved]
  - Feeling abnormal [Unknown]
  - Adverse drug reaction [Recovered/Resolved]
  - Blindness [Not Recovered/Not Resolved]
  - Bone disorder [Unknown]
  - Adverse event [Unknown]
  - Pain [Unknown]
  - Plague [Unknown]
  - Sinusitis [Unknown]
  - Blister [Not Recovered/Not Resolved]
  - Insomnia [Recovered/Resolved]
  - Immune system disorder [Not Recovered/Not Resolved]
  - Multi-organ failure [Unknown]
  - Muscle disorder [Unknown]
  - Abnormal loss of weight [Not Recovered/Not Resolved]
  - Influenza like illness [Unknown]
  - Pharyngitis [Unknown]
  - Deafness [Not Recovered/Not Resolved]
  - Seizure [Unknown]
  - Mental disorder [Recovered/Resolved]
  - Skin mass [Not Recovered/Not Resolved]
  - Panic attack [Unknown]
  - Bedridden [Recovered/Resolved]
  - Dyskinesia [Unknown]
  - Drug ineffective [Unknown]
  - Drug ineffective [Not Recovered/Not Resolved]
  - Deformity [Not Recovered/Not Resolved]
  - Burning sensation [Unknown]
  - Skin exfoliation [Not Recovered/Not Resolved]
  - Stress [Unknown]

NARRATIVE: CASE EVENT DATE: 2008
